FAERS Safety Report 13446288 (Version 1)
Quarter: 2017Q2

REPORT INFORMATION
  Report Type: Report from Study
  Country: JP (occurrence: JP)
  Receive Date: 20170417
  Receipt Date: 20170417
  Transmission Date: 20170830
  Serious: Yes (Other)
  Sender: FDA-Public Use
  Company Number: JP-ROCHE-1918639

PATIENT
  Age: 24 Year
  Sex: Female
  Weight: 38 kg

DRUGS (26)
  1. SOL-MELCORT [Concomitant]
     Active Substance: METHYLPREDNISOLONE SODIUM SUCCINATE
     Route: 042
     Dates: start: 20151016, end: 20151016
  2. POLARAMINE [Concomitant]
     Active Substance: DEXCHLORPHENIRAMINE MALEATE
     Route: 048
     Dates: start: 20151009, end: 20151009
  3. FERROUS CITRATE [Concomitant]
     Active Substance: FERROUS CITRATE
     Route: 048
     Dates: start: 20160314, end: 20160401
  4. POLARAMINE [Concomitant]
     Active Substance: DEXCHLORPHENIRAMINE MALEATE
     Route: 048
     Dates: start: 20150925, end: 20150925
  5. NEORAL [Concomitant]
     Active Substance: CYCLOSPORINE
     Route: 048
     Dates: start: 20151028, end: 20151112
  6. BAKTAR [Concomitant]
     Active Substance: SULFAMETHOXAZOLE\TRIMETHOPRIM
     Indication: INFECTION PROPHYLAXIS
     Route: 048
     Dates: start: 20150919
  7. CALONAL [Concomitant]
     Active Substance: ACETAMINOPHEN
     Indication: PREMEDICATION
     Route: 048
     Dates: start: 20150918, end: 20150918
  8. RITUXIMAB [Suspect]
     Active Substance: RITUXIMAB
     Indication: NEPHROTIC SYNDROME
     Dosage: INFUSION RATE OF 25 MG/H
     Route: 041
     Dates: start: 20150918, end: 20150918
  9. RITUXIMAB [Suspect]
     Active Substance: RITUXIMAB
     Dosage: INFUSION RATE OF 25 MG/H
     Route: 041
     Dates: start: 20150925, end: 20150925
  10. RITUXIMAB [Suspect]
     Active Substance: RITUXIMAB
     Dosage: INFUSION RATE OF 25 MG/H
     Route: 041
     Dates: start: 20151016, end: 20151016
  11. NEORAL [Concomitant]
     Active Substance: CYCLOSPORINE
     Indication: NEPHROTIC SYNDROME
     Route: 048
     Dates: start: 20050218, end: 20151027
  12. CALONAL [Concomitant]
     Active Substance: ACETAMINOPHEN
     Route: 048
     Dates: start: 20150925, end: 20150925
  13. ZESTRIL [Concomitant]
     Active Substance: LISINOPRIL
     Indication: HYPERTENSION
     Route: 048
  14. MINOCYCLINE [Concomitant]
     Active Substance: MINOCYCLINE\MINOCYCLINE HYDROCHLORIDE
     Indication: ACNE
     Route: 048
     Dates: start: 20151027, end: 20151112
  15. PREDONINE [Concomitant]
     Active Substance: PREDNISOLONE
     Indication: NEPHROTIC SYNDROME
     Dosage: 10-25 MG
     Route: 048
     Dates: start: 200904
  16. SOL-MELCORT [Concomitant]
     Active Substance: METHYLPREDNISOLONE SODIUM SUCCINATE
     Route: 042
     Dates: start: 20151009, end: 20151009
  17. RITUXIMAB [Suspect]
     Active Substance: RITUXIMAB
     Dosage: SRENGTH: 10 MG/ML, INFUSION RATE OF 25 MG/H.
     Route: 041
     Dates: start: 20151009, end: 20151009
  18. CALONAL [Concomitant]
     Active Substance: ACETAMINOPHEN
     Route: 048
     Dates: start: 20151016, end: 20151016
  19. POLARAMINE [Concomitant]
     Active Substance: DEXCHLORPHENIRAMINE MALEATE
     Indication: PREMEDICATION
     Route: 048
     Dates: start: 20150918, end: 20150918
  20. BREDININ [Concomitant]
     Active Substance: MIZORIBINE
     Indication: NEPHROTIC SYNDROME
     Route: 048
     Dates: start: 20070402
  21. SOL-MELCORT [Concomitant]
     Active Substance: METHYLPREDNISOLONE SODIUM SUCCINATE
     Indication: PREMEDICATION
     Route: 042
     Dates: start: 20150918, end: 20150918
  22. CALONAL [Concomitant]
     Active Substance: ACETAMINOPHEN
     Route: 048
     Dates: start: 20151009, end: 20151009
  23. POLARAMINE [Concomitant]
     Active Substance: DEXCHLORPHENIRAMINE MALEATE
     Route: 048
     Dates: start: 20151016, end: 20151016
  24. MEIACT [Concomitant]
     Active Substance: CEFDITOREN PIVOXIL
     Indication: IMPETIGO
     Route: 048
     Dates: start: 20151112, end: 20151119
  25. THREENOFEN [Concomitant]
     Active Substance: LOXOPROFEN SODIUM
     Indication: DYSMENORRHOEA
     Route: 048
     Dates: start: 20151127, end: 20151225
  26. REBAMIPIDE [Concomitant]
     Active Substance: REBAMIPIDE
     Indication: DYSMENORRHOEA
     Route: 048
     Dates: start: 20151127, end: 20151225

REACTIONS (1)
  - Endometriosis [Recovering/Resolving]

NARRATIVE: CASE EVENT DATE: 20151127
